FAERS Safety Report 8116387-2 (Version None)
Quarter: 2012Q1

REPORT INFORMATION
  Report Type: 
  Country: None (occurrence: None)
  Receive Date: 20120206
  Receipt Date: 20120201
  Transmission Date: 20120608
  Serious: Yes (Hospitalization)
  Sender: FDA-Public Use
  Company Number: JP-GLAXOSMITHKLINE-B0779174A

PATIENT

DRUGS (3)
  1. FLUTICASONE PROPIONATE/SALMETEROL [Suspect]
     Dosage: 250MCG PER DAY
     Route: 055
     Dates: start: 20111101, end: 20111201
  2. FLUTICASONE PROPIONATE/SALMETEROL [Suspect]
     Route: 055
  3. FLUTICASONE PROPIONATE/SALMETEROL [Suspect]
     Dosage: 500MCG PER DAY
     Route: 055
     Dates: start: 20111201, end: 20120106

REACTIONS (8)
  - SALIVA DISCOLOURATION [None]
  - SALIVA ALTERED [None]
  - VOCAL CORD DISORDER [None]
  - THORACIC VERTEBRAL FRACTURE [None]
  - FALL [None]
  - PRODUCT QUALITY ISSUE [None]
  - UPPER RESPIRATORY TRACT INFLAMMATION [None]
  - DYSPHONIA [None]
